FAERS Safety Report 19689102 (Version 1)
Quarter: 2021Q3

REPORT INFORMATION
  Report Type: Spontaneous
  Country: US (occurrence: US)
  Receive Date: 20210812
  Receipt Date: 20210812
  Transmission Date: 20211014
  Serious: Yes (Other)
  Sender: FDA-Public Use
  Company Number: US-ENCUBE-000096

PATIENT
  Sex: Female

DRUGS (1)
  1. DICLOFENAC SODIUM TOPICAL GEL 1% [Suspect]
     Active Substance: DICLOFENAC SODIUM
     Indication: PRODUCT USED FOR UNKNOWN INDICATION
     Dosage: 3.53 OZ. (100 G), 1 COUNT
     Route: 061

REACTIONS (3)
  - Head injury [Unknown]
  - Wound haemorrhage [Unknown]
  - Syncope [Unknown]
